FAERS Safety Report 7753628-5 (Version None)
Quarter: 2011Q3

REPORT INFORMATION
  Report Type: 
  Country: None (occurrence: None)
  Receive Date: 20110915
  Receipt Date: 20110909
  Transmission Date: 20111222
  Serious: Yes (Other)
  Sender: FDA-Public Use
  Company Number: GB-GLAXOSMITHKLINE-B0746139A

PATIENT
  Age: 82 Year
  Sex: Male

DRUGS (2)
  1. FLUDROCORTISONE ACETATE [Concomitant]
  2. ACYCLOVIR [Suspect]
     Indication: ENCEPHALITIS VIRAL
     Route: 042
     Dates: start: 20110812, end: 20110821

REACTIONS (5)
  - GAMMA-GLUTAMYLTRANSFERASE INCREASED [None]
  - BLOOD ALKALINE PHOSPHATASE INCREASED [None]
  - ASPARTATE AMINOTRANSFERASE INCREASED [None]
  - ALANINE AMINOTRANSFERASE INCREASED [None]
  - LIVER FUNCTION TEST ABNORMAL [None]
